FAERS Safety Report 7206212-6 (Version None)
Quarter: 2011Q1

REPORT INFORMATION
  Report Type: 
  Country: None (occurrence: None)
  Receive Date: 20110103
  Receipt Date: 20101221
  Transmission Date: 20110831
  Serious: Yes (Hospitalization, Other)
  Sender: FDA-Public Use
  Company Number: US-ELI_LILLY_AND_COMPANY-US201005001254

PATIENT
  Sex: Female

DRUGS (5)
  1. FORTEO [Suspect]
     Dosage: 20 UG, DAILY (1/D)
  2. ERGOCALCIFEROL (VITAMIN D) [Concomitant]
     Dosage: 1 D/F, MONTHLY (1/M)
  3. FORTEO [Suspect]
     Indication: OSTEOPOROSIS
     Dosage: UNK, UNK
     Dates: start: 20100305, end: 20100428
  4. FORTEO [Suspect]
     Dosage: 20 UG, DAILY (1/D)
     Dates: start: 20100429
  5. MULTI-VIT [Concomitant]

REACTIONS (8)
  - ARTHRALGIA [None]
  - CARDIAC DISORDER [None]
  - VOMITING [None]
  - DIARRHOEA [None]
  - MALAISE [None]
  - ARTHROPATHY [None]
  - VERTIGO [None]
  - NAUSEA [None]
